FAERS Safety Report 4912603-6 (Version None)
Quarter: 2006Q1

REPORT INFORMATION
  Report Type: 
  Country: None (occurrence: None)
  Receive Date: 20060215
  Receipt Date: 20060210
  Transmission Date: 20060701
  Serious: Yes (Other)
  Sender: FDA-Public Use
  Company Number: 2006002471

PATIENT
  Age: 64 Year
  Sex: Female
  Weight: 60 kg

DRUGS (7)
  1. VOLMAC [Suspect]
     Dosage: 1TAB SINGLE DOSE
     Route: 048
  2. BROMAZANIL [Suspect]
     Dosage: 10TAB SINGLE DOSE
     Route: 048
  3. PANTOZOL [Suspect]
     Dosage: 4TAB SINGLE DOSE
     Route: 048
  4. PROMETHAZINE [Suspect]
     Dosage: 11TAB SINGLE DOSE
     Route: 048
  5. THEOPHYLLINE [Suspect]
     Route: 048
  6. VOLTAREN [Suspect]
     Dosage: 4CAP SINGLE DOSE
     Route: 048
  7. ZOPICLON [Suspect]
     Dosage: 10TAB SINGLE DOSE
     Route: 048

REACTIONS (5)
  - HYPERVENTILATION [None]
  - INTENTIONAL OVERDOSE [None]
  - MYDRIASIS [None]
  - SOMNOLENCE [None]
  - SUICIDE ATTEMPT [None]
